FAERS Safety Report 20942678 (Version 1)
Quarter: 2022Q2

REPORT INFORMATION
  Report Type: Spontaneous
  Country: JP (occurrence: JP)
  Receive Date: 20220610
  Receipt Date: 20220610
  Transmission Date: 20220721
  Serious: Yes (Other)
  Sender: FDA-Public Use
  Company Number: JP-Vifor (International) Inc.-VIT-2022-03970

PATIENT
  Sex: Male

DRUGS (1)
  1. VELPHORO [Suspect]
     Active Substance: SUCROFERRIC OXYHYDROXIDE
     Indication: Hyperphosphataemia
     Route: 048

REACTIONS (1)
  - Pneumonia aspiration [Unknown]
